FAERS Safety Report 13350904 (Version 1)
Quarter: 2017Q1

REPORT INFORMATION
  Report Type: Spontaneous
  Country: US (occurrence: US)
  Receive Date: 20170320
  Receipt Date: 20170320
  Transmission Date: 20170429
  Serious: No
  Sender: FDA-Public Use
  Company Number: US-PFIZER INC-2017113919

PATIENT
  Age: 70 Year
  Sex: Female
  Weight: 85.28 kg

DRUGS (3)
  1. IBRANCE [Suspect]
     Active Substance: PALBOCICLIB
     Indication: BREAST CANCER METASTATIC
     Dosage: 250 MG, UNK
     Route: 048
     Dates: start: 201612
  2. IBRANCE [Suspect]
     Active Substance: PALBOCICLIB
     Dosage: 100 MG, UNK
  3. FEMARA [Suspect]
     Active Substance: LETROZOLE
     Indication: HORMONE THERAPY
     Dosage: 2.5MG, EVERYDAY
     Route: 048
     Dates: start: 201612

REACTIONS (3)
  - Headache [Not Recovered/Not Resolved]
  - Dizziness [Not Recovered/Not Resolved]
  - Head discomfort [Not Recovered/Not Resolved]
